FAERS Safety Report 13552048 (Version 2)
Quarter: 2017Q2

REPORT INFORMATION
  Report Type: Report from Study
  Country: US (occurrence: US)
  Receive Date: 20170516
  Receipt Date: 20170623
  Transmission Date: 20170830
  Serious: Yes (Hospitalization)
  Sender: FDA-Public Use
  Company Number: US-ARIAD-2016US007099

PATIENT
  Sex: Male
  Weight: 63 kg

DRUGS (4)
  1. ICLUSIG [Suspect]
     Active Substance: PONATINIB
     Dosage: 45 MG, QD
     Route: 048
  2. ICLUSIG [Suspect]
     Active Substance: PONATINIB
     Dosage: 30 MG, QD
     Route: 048
  3. ICLUSIG [Suspect]
     Active Substance: PONATINIB
     Dosage: 30 MG, QD
     Route: 048
  4. ICLUSIG [Suspect]
     Active Substance: PONATINIB
     Indication: CHRONIC MYELOID LEUKAEMIA
     Dosage: 45 MG, QD
     Route: 048
     Dates: start: 201610, end: 20161114

REACTIONS (10)
  - Renal disorder [Not Recovered/Not Resolved]
  - Nasal congestion [Unknown]
  - Graft versus host disease [Not Recovered/Not Resolved]
  - Gout [Unknown]
  - Pyrexia [Unknown]
  - Hepatic enzyme increased [Unknown]
  - Rash [Not Recovered/Not Resolved]
  - Headache [Unknown]
  - Off label use [Not Recovered/Not Resolved]
  - Transplant [Not Recovered/Not Resolved]
